FAERS Safety Report 13067929 (Version 1)
Quarter: 2016Q4

REPORT INFORMATION
  Report Type: Report from Study
  Country: DE (occurrence: DE)
  Receive Date: 20161228
  Receipt Date: 20161228
  Transmission Date: 20170207
  Serious: Yes (Hospitalization, Disabling)
  Sender: FDA-Public Use
  Company Number: PHHO2016DE018628

PATIENT
  Age: 59 Year
  Sex: Male
  Weight: 113 kg

DRUGS (5)
  1. MYFORTIC [Suspect]
     Active Substance: MYCOPHENOLATE SODIUM
     Indication: RENAL TRANSPLANT
     Dosage: 1080 MG, UNK
     Route: 048
     Dates: start: 20120410
  2. MYFORTIC [Suspect]
     Active Substance: MYCOPHENOLATE SODIUM
     Dosage: 720 MG, UNK
     Route: 048
     Dates: start: 20161112
  3. NO TREATMENT RECEIVED [Suspect]
     Active Substance: UNSPECIFIED INGREDIENT
     Dosage: NO TREATMENT
     Route: 048
  4. ADVAGRAF [Suspect]
     Active Substance: TACROLIMUS
     Indication: RENAL TRANSPLANT
     Dosage: 1.5 MG, UNK
     Route: 048
     Dates: start: 20120414
  5. ADVAGRAF [Suspect]
     Active Substance: TACROLIMUS
     Dosage: 0.5 UNK, UNK
     Route: 048

REACTIONS (1)
  - Steatohepatitis [Recovering/Resolving]

NARRATIVE: CASE EVENT DATE: 20160912
